FAERS Safety Report 9398443 (Version 1)
Quarter: 2013Q3

REPORT INFORMATION
  Report Type: Spontaneous
  Country: US (occurrence: US)
  Receive Date: 20130712
  Receipt Date: 20130712
  Transmission Date: 20140515
  Serious: No
  Sender: FDA-Public Use
  Company Number: US-GLAXOSMITHKLINE-A1022496A

PATIENT
  Age: 62 Year
  Sex: Female

DRUGS (2)
  1. FLOVENT [Suspect]
     Indication: ASTHMA
     Dosage: 2PUFF TWICE PER DAY
     Route: 055
  2. ALBUTEROL [Concomitant]

REACTIONS (7)
  - Cough [Recovering/Resolving]
  - Oropharyngeal pain [Unknown]
  - Asthma [Unknown]
  - Drug ineffective [Unknown]
  - Dysphonia [Unknown]
  - Upper respiratory tract infection [Unknown]
  - Product quality issue [Unknown]
